FAERS Safety Report 8533033 (Version 2)
Quarter: 2012Q4

REPORT INFORMATION
  Report Type: 
  Country: CA (occurrence: CA)
  Receive Date: 20120427
  Receipt Date: 20121008
  Transmission Date: 20130627
  Serious: Yes (Hospitalization)
  Sender: FDA-Public Use
  Company Number: PHHY2012CA034066

PATIENT
  Sex: Female

DRUGS (2)
  1. SANDOSTATIN LAR [Suspect]
     Indication: CARCINOID TUMOUR
     Dosage: 20 mg, every 4 weeks
     Route: 030
     Dates: start: 20110216
  2. SANDOSTATIN LAR [Suspect]
     Dosage: 30 mg, every 4 week
     Route: 030
     Dates: start: 20120830

REACTIONS (5)
  - Pneumonia [Unknown]
  - Arthralgia [Unknown]
  - Musculoskeletal pain [Unknown]
  - Musculoskeletal stiffness [Unknown]
  - Diarrhoea [Unknown]
